FAERS Safety Report 13652027 (Version 2)
Quarter: 2017Q2

REPORT INFORMATION
  Report Type: Report from Study
  Country: DE (occurrence: DE)
  Receive Date: 20170614
  Receipt Date: 20170622
  Transmission Date: 20170830
  Serious: Yes (Other)
  Sender: FDA-Public Use
  Company Number: DE-TEVA-777427GER

PATIENT
  Age: 24 Year
  Sex: Female

DRUGS (3)
  1. ANAKINRA [Suspect]
     Active Substance: ANAKINRA
     Route: 065
  2. PANTOPRAZOLE [Suspect]
     Active Substance: PANTOPRAZOLE
     Route: 065
  3. DIMETINDENE [Suspect]
     Active Substance: DIMETHINDENE
     Route: 065

REACTIONS (2)
  - Hepatic encephalopathy [Recovered/Resolved]
  - Acute hepatic failure [Recovered/Resolved]
